FAERS Safety Report 8816858 (Version 1)
Quarter: 2012Q4

REPORT INFORMATION
  Report Type: Spontaneous
  Country: US (occurrence: None)
  Receive Date: 20121002
  Receipt Date: 20121002
  Transmission Date: 20130627
  Serious: Yes (Life-Threatening, Hospitalization)
  Sender: FDA-Public Use
  Company Number: None

PATIENT
  Age: 79 Year
  Sex: Female
  Weight: 77.11 kg

DRUGS (2)
  1. TRIAMCINOLONE ACETONIDE [Suspect]
     Indication: OSTEOARTHRITIS
     Dosage: 2 injections 2 IM
     Route: 030
     Dates: start: 20120201, end: 20120201
  2. TRIAMCINOLONE ACETONIDE [Suspect]
     Indication: OSTEOARTHRITIS
     Dates: start: 20120328, end: 20120328

REACTIONS (3)
  - Injection site abscess [None]
  - Product contamination [None]
  - Infection [None]
